FAERS Safety Report 10554212 (Version 2)
Quarter: 2014Q4

REPORT INFORMATION
  Report Type: Report from Study
  Country: US (occurrence: US)
  Receive Date: 20141030
  Receipt Date: 20141030
  Transmission Date: 20150529
  Serious: Yes (Death, Hospitalization)
  Sender: FDA-Public Use
  Company Number: US-JNJFOC-20141006865

PATIENT
  Age: 71 Year
  Sex: Male
  Weight: 85 kg

DRUGS (17)
  1. MELATONIN [Concomitant]
     Active Substance: MELATONIN
  2. FINASTERIDE. [Concomitant]
     Active Substance: FINASTERIDE
  3. SYNTHROID [Concomitant]
     Active Substance: LEVOTHYROXINE SODIUM
  4. SPIRIVA [Concomitant]
     Active Substance: TIOTROPIUM BROMIDE MONOHYDRATE
  5. LEVOFLOXACIN. [Concomitant]
     Active Substance: LEVOFLOXACIN
  6. SYMBICORT [Concomitant]
     Active Substance: BUDESONIDE\FORMOTEROL FUMARATE DIHYDRATE
  7. FUROSEMIDE. [Concomitant]
     Active Substance: FUROSEMIDE
  8. HYDROCODONE/ACETAMINOPHEN [Concomitant]
     Active Substance: ACETAMINOPHEN\HYDROCODONE
  9. ALBUTEROL. [Concomitant]
     Active Substance: ALBUTEROL
  10. VITAMIN C [Concomitant]
     Active Substance: ASCORBIC ACID
  11. OMEPRAZOLE. [Concomitant]
     Active Substance: OMEPRAZOLE
  12. DONEPEZIL [Concomitant]
     Active Substance: DONEPEZIL
  13. VITAMIN E [Concomitant]
     Active Substance: .ALPHA.-TOCOPHEROL
  14. IBRUTINIB [Suspect]
     Active Substance: IBRUTINIB
     Indication: CHRONIC LYMPHOCYTIC LEUKAEMIA
     Route: 048
     Dates: start: 20140628, end: 20140924
  15. LORAZEPAM. [Concomitant]
     Active Substance: LORAZEPAM
  16. VITAMIN D [Concomitant]
     Active Substance: CHOLECALCIFEROL
  17. SERTRALINE [Concomitant]
     Active Substance: SERTRALINE HYDROCHLORIDE

REACTIONS (3)
  - Pulmonary oedema [Fatal]
  - Pneumonia [Fatal]
  - Immunosuppression [Fatal]

NARRATIVE: CASE EVENT DATE: 20140924
